FAERS Safety Report 9271304 (Version 1)
Quarter: 2013Q2

REPORT INFORMATION
  Report Type: Spontaneous
  Country: GB (occurrence: GB)
  Receive Date: 20130506
  Receipt Date: 20130506
  Transmission Date: 20140414
  Serious: Yes (Hospitalization)
  Sender: FDA-Public Use
  Company Number: GB-ELI_LILLY_AND_COMPANY-GB201304007015

PATIENT
  Age: 82 Year
  Sex: Male

DRUGS (6)
  1. FORSTEO [Suspect]
     Indication: OSTEOPOROSIS
     Dosage: 20MCG, OD
     Route: 058
     Dates: start: 201304, end: 201304
  2. PARACETAMOL [Concomitant]
     Indication: BACK PAIN
     Dosage: UNK
  3. BUTRANS [Concomitant]
     Indication: BACK PAIN
     Dosage: UNK
  4. DICLOFENAC [Concomitant]
     Indication: BACK PAIN
     Dosage: 25MG, TID
  5. ASPIRIN [Concomitant]
     Dosage: 75MG,OD
  6. LANSOPRAZOL [Concomitant]
     Indication: HIATUS HERNIA
     Dosage: 30MG, OD

REACTIONS (6)
  - Dizziness [Recovering/Resolving]
  - Lethargy [Recovering/Resolving]
  - Emotional disorder [Recovering/Resolving]
  - Depression [Recovering/Resolving]
  - Muscular weakness [Recovering/Resolving]
  - Blood albumin decreased [Unknown]
